FAERS Safety Report 9462567 (Version 1)
Quarter: 2013Q3

REPORT INFORMATION
  Report Type: Spontaneous
  Country: US (occurrence: US)
  Receive Date: 20130816
  Receipt Date: 20130816
  Transmission Date: 20140515
  Serious: Yes (Other)
  Sender: FDA-Public Use
  Company Number: US-ASTRAZENECA-2013SE62258

PATIENT
  Age: 64 Year
  Sex: Male
  Weight: 74.8 kg

DRUGS (6)
  1. NEXIUM [Suspect]
     Indication: GASTROOESOPHAGEAL REFLUX DISEASE
     Dosage: 40 MG-80MG DAILY
     Route: 048
     Dates: start: 2010
  2. RAMIPRIL [Concomitant]
     Indication: CARDIAC DISORDER
     Route: 048
  3. CLOPIDOGREL [Concomitant]
     Indication: ANTICOAGULANT THERAPY
     Route: 048
  4. BABY ASPIRIN [Concomitant]
     Indication: ANTICOAGULANT THERAPY
     Route: 048
  5. ZOLOFT [Concomitant]
     Route: 048
  6. CENTRUM SILVER [Concomitant]
     Indication: VITAMIN SUPPLEMENTATION
     Route: 048

REACTIONS (6)
  - Hiatus hernia [Unknown]
  - Iliac artery occlusion [Unknown]
  - Pain in extremity [Unknown]
  - Fatigue [Unknown]
  - Hypersomnia [Unknown]
  - Intentional drug misuse [Unknown]
